FAERS Safety Report 20565239 (Version 5)
Quarter: 2022Q2

REPORT INFORMATION
  Report Type: Report from Study
  Country: CA (occurrence: CA)
  Receive Date: 20220308
  Receipt Date: 20220415
  Transmission Date: 20220720
  Serious: Yes (Other)
  Sender: FDA-Public Use
  Company Number: CA-NOVARTISPH-NVSC2022CA052381

PATIENT
  Age: 73 Year
  Sex: Female

DRUGS (14)
  1. ACLASTA [Suspect]
     Active Substance: ZOLEDRONIC ACID
     Indication: Product used for unknown indication
     Dosage: 5 MG, UNKNOWN
     Route: 042
     Dates: start: 201807, end: 202112
  2. DULOXETINE [Suspect]
     Active Substance: DULOXETINE
     Indication: Product used for unknown indication
     Dosage: 1 DOSAGE FORM, QD (1 X 60MG)
     Route: 048
  3. PANTOPRAZOLE [Suspect]
     Active Substance: PANTOPRAZOLE
     Indication: Product used for unknown indication
     Dosage: 1 DOSAGE FORM, QD (1 X 40MG)
     Route: 048
  4. PERINDOPRIL [Suspect]
     Active Substance: PERINDOPRIL
     Indication: Product used for unknown indication
     Dosage: 4 MG, UNKNOWN
     Route: 048
  5. PREGABALIN [Suspect]
     Active Substance: PREGABALIN
     Indication: Product used for unknown indication
     Dosage: 1 DOSAGE FORM, QD (1 X 100ML)
     Route: 048
  6. LEFLUNOMIDE [Suspect]
     Active Substance: LEFLUNOMIDE
     Indication: Product used for unknown indication
     Dosage: 20 MG, UNKNOWN
     Route: 048
  7. METHOTREXATE [Suspect]
     Active Substance: METHOTREXATE
     Indication: Product used for unknown indication
     Dosage: UNK UNK, UNKNOWN
     Route: 058
  8. SIMPONI [Concomitant]
     Active Substance: GOLIMUMAB
     Indication: Product used for unknown indication
     Dosage: UNK
     Route: 058
     Dates: start: 202108
  9. LEVOTHYROXINE [Concomitant]
     Active Substance: LEVOTHYROXINE
     Indication: Product used for unknown indication
     Dosage: 1 DOSAGE FORM, QD (100 MG)
     Route: 065
  10. LIPITOR [Concomitant]
     Active Substance: ATORVASTATIN CALCIUM
     Indication: Product used for unknown indication
     Dosage: 1 DOSAGE FORM (10 MG)
     Route: 065
  11. VITAMIN D [Concomitant]
     Active Substance: VITAMIN D NOS
     Indication: Product used for unknown indication
     Dosage: 1 DOSAGE FORM, QW (50000, UNIT: OTHER)
     Route: 048
     Dates: start: 202009
  12. DICLOFENAC [Concomitant]
     Active Substance: DICLOFENAC
     Indication: Product used for unknown indication
     Dosage: 1 DOSAGE FORM (COMPOUNDED CREAM WITH DICLOFENA) (10)
     Route: 061
  13. HUMIRA [Concomitant]
     Active Substance: ADALIMUMAB
     Indication: Product used for unknown indication
     Dosage: 1 DOSAGE FORM, BIW (40 MG)
     Route: 065
     Dates: start: 202005, end: 202106
  14. PREDNISONE [Concomitant]
     Active Substance: PREDNISONE
     Indication: Product used for unknown indication
     Dosage: UNK
     Route: 048
     Dates: start: 2018

REACTIONS (27)
  - Psoriatic arthropathy [Unknown]
  - Polymyalgia rheumatica [Unknown]
  - Femur fracture [Unknown]
  - Fibromyalgia [Unknown]
  - Meralgia paraesthetica [Unknown]
  - Plantar fasciitis [Unknown]
  - Psoriasis [Not Recovered/Not Resolved]
  - Arthropathy [Unknown]
  - Spinal stenosis [Unknown]
  - Movement disorder [Unknown]
  - Weight decreased [Unknown]
  - Synovitis [Unknown]
  - Bone marrow oedema [Unknown]
  - Foot deformity [Unknown]
  - Pneumonitis [Unknown]
  - Dysstasia [Unknown]
  - Gait disturbance [Unknown]
  - Blood cholesterol increased [Unknown]
  - Arthritis [Unknown]
  - Back pain [Not Recovered/Not Resolved]
  - Dyspnoea [Not Recovered/Not Resolved]
  - Joint swelling [Unknown]
  - Pain [Unknown]
  - Hypertension [Unknown]
  - Fall [Unknown]
  - Rib fracture [Unknown]
  - Drug ineffective [Unknown]

NARRATIVE: CASE EVENT DATE: 20181101
